FAERS Safety Report 5330748-6 (Version None)
Quarter: 2007Q2

REPORT INFORMATION
  Report Type: 
  Country: None (occurrence: None)
  Receive Date: 20070227
  Receipt Date: 20060104
  Transmission Date: 20071010
  Serious: Yes (Other)
  Sender: FDA-Public Use
  Company Number: 430948

PATIENT

DRUGS (2)
  1. ACCUTANE [Suspect]
     Indication: ACNE
  2. AMNESTEEM [Suspect]
     Indication: ACNE

REACTIONS (2)
  - NO ADVERSE EFFECT [None]
  - PREGNANCY [None]
